FAERS Safety Report 9239783 (Version 1)
Quarter: 2013Q2

REPORT INFORMATION
  Report Type: Spontaneous
  Country: ES (occurrence: ES)
  Receive Date: 20130418
  Receipt Date: 20130418
  Transmission Date: 20140414
  Serious: Yes (Other)
  Sender: FDA-Public Use
  Company Number: ES-TEVA-397313ISR

PATIENT
  Age: 3 Year
  Sex: Male

DRUGS (1)
  1. MONTELUKAST [Suspect]
     Indication: ASTHMA
     Dosage: 4 MILLIGRAM DAILY;
     Route: 065

REACTIONS (2)
  - Nightmare [Unknown]
  - Hallucination [Unknown]
